FAERS Safety Report 6826413-6 (Version None)
Quarter: 2010Q3

REPORT INFORMATION
  Report Type: 
  Country: None (occurrence: None)
  Receive Date: 20100709
  Receipt Date: 20100705
  Transmission Date: 20110219
  Serious: Yes (Hospitalization)
  Sender: FDA-Public Use
  Company Number: JP-BAYER-201012190BYL

PATIENT
  Age: 50 Year
  Sex: Female

DRUGS (7)
  1. AVELOX [Suspect]
     Indication: PNEUMONIA
     Dosage: UNIT DOSE: 400 MG
     Route: 048
     Dates: start: 20100430, end: 20100502
  2. BIOFERMIN R [Concomitant]
     Route: 048
     Dates: start: 20100430, end: 20100502
  3. VOLTAREN [Concomitant]
     Route: 054
     Dates: start: 20100430
  4. AMARYL [Concomitant]
     Route: 048
     Dates: start: 20090324
  5. BASEN [Concomitant]
     Route: 048
     Dates: start: 20090324
  6. MICARDIS [Concomitant]
     Route: 048
     Dates: start: 20080601
  7. ZOSYN [Concomitant]
     Indication: PNEUMONIA
     Route: 041
     Dates: start: 20100430, end: 20100506

REACTIONS (1)
  - HYPOGLYCAEMIA [None]
